FAERS Safety Report 4476247-5 (Version None)
Quarter: 2004Q3

REPORT INFORMATION
  Report Type: 
  Country: None (occurrence: None)
  Receive Date: 20040923
  Receipt Date: 20040729
  Transmission Date: 20050211
  Serious: No
  Sender: FDA-Public Use
  Company Number: USA040773903

PATIENT
  Age: 62 Year
  Sex: Female
  Weight: 64 kg

DRUGS (2)
  1. FORTEO [Suspect]
     Indication: SPINAL FRACTURE
     Dosage: 20 UG 1 DAY
     Dates: start: 20040722
  2. CALTRATE 600 PLUS VITAMIN D [Concomitant]

REACTIONS (1)
  - INJECTION SITE PAIN [None]
